FAERS Safety Report 7958841-X (Version None)
Quarter: 2011Q4

REPORT INFORMATION
  Report Type: 
  Country: None (occurrence: None)
  Receive Date: 20111206
  Receipt Date: 20111128
  Transmission Date: 20120403
  Serious: Yes (Hospitalization)
  Sender: FDA-Public Use
  Company Number: IT-UCBSA-039715

PATIENT
  Age: 63 Year
  Sex: Female

DRUGS (5)
  1. FLUOXETINE [Concomitant]
  2. KEPPRA [Suspect]
     Indication: DYSTHYMIC DISORDER
     Dosage: DAILY DOSE:500 MG; 60 TABLETS
     Route: 048
     Dates: start: 20110721, end: 20110725
  3. CRESTOR [Concomitant]
     Dosage: TOTAL DAILY DOSE : 10 MG
  4. RISEDRONATE SODIUM [Concomitant]
     Dosage: 2 TABLETS; TOTAL DAILY DOSE : 75 MG
  5. RAMIPRIL [Concomitant]

REACTIONS (1)
  - ANGLE CLOSURE GLAUCOMA [None]
